FAERS Safety Report 12753386 (Version 1)
Quarter: 2016Q3

REPORT INFORMATION
  Report Type: Spontaneous
  Country: US (occurrence: US)
  Receive Date: 20160915
  Receipt Date: 20160915
  Transmission Date: 20161109
  Serious: No
  Sender: FDA-Public Use
  Company Number: US-ASTELLAS-2015US041624

PATIENT
  Age: 82 Year
  Sex: Male

DRUGS (1)
  1. XTANDI [Suspect]
     Active Substance: ENZALUTAMIDE
     Indication: HORMONE-REFRACTORY PROSTATE CANCER
     Route: 048
     Dates: start: 20151017, end: 20151102

REACTIONS (3)
  - Pain in extremity [Recovering/Resolving]
  - Peripheral swelling [Recovering/Resolving]
  - Erythema [Unknown]

NARRATIVE: CASE EVENT DATE: 20151030
